FAERS Safety Report 5448999-9 (Version None)
Quarter: 2007Q3

REPORT INFORMATION
  Report Type: 
  Country: None (occurrence: None)
  Receive Date: 20070911
  Receipt Date: 20070907
  Transmission Date: 20080115
  Serious: Yes (Life-Threatening)
  Sender: FDA-Public Use
  Company Number: JP-ASTRAZENECA-2007AP04604

PATIENT
  Age: 26908 Day
  Sex: Female
  Weight: 50 kg

DRUGS (6)
  1. ARIMIDEX [Suspect]
     Indication: BREAST CANCER
     Route: 048
     Dates: start: 20070703, end: 20070729
  2. URSO 250 [Concomitant]
     Indication: HEPATIC FUNCTION ABNORMAL
     Route: 048
  3. NORVASC R [Concomitant]
     Indication: HYPERTENSION
     Route: 048
  4. LIVALO [Concomitant]
     Route: 048
  5. PATANOL [Concomitant]
     Indication: CATARACT
  6. FLUOROMETHOLONE [Concomitant]
     Indication: CATARACT

REACTIONS (1)
  - INTERSTITIAL LUNG DISEASE [None]
